FAERS Safety Report 8469621-3 (Version None)
Quarter: 2012Q2

REPORT INFORMATION
  Report Type: 
  Country: None (occurrence: None)
  Receive Date: 20120626
  Receipt Date: 20120508
  Transmission Date: 20120825
  Serious: No
  Sender: FDA-Public Use
  Company Number: US-TEVA-337220USA

PATIENT
  Sex: Female

DRUGS (1)
  1. QNASL [Suspect]
     Indication: RHINITIS PERENNIAL
     Dosage: 80 MICROGRAM;
     Route: 045

REACTIONS (2)
  - DRUG EFFECT DECREASED [None]
  - NASAL DISCOMFORT [None]
